FAERS Safety Report 4883394-2 (Version None)
Quarter: 2006Q1

REPORT INFORMATION
  Report Type: 
  Country: None (occurrence: None)
  Receive Date: 20060117
  Receipt Date: 20060117
  Transmission Date: 20060701
  Serious: Yes (Life-Threatening, Hospitalization)
  Sender: FDA-Public Use
  Company Number: None

PATIENT
  Age: 74 Year
  Sex: Female
  Weight: 54.4316 kg

DRUGS (4)
  1. CELEBREX [Suspect]
     Indication: OSTEOARTHRITIS
     Dosage: 200 MG -DAILY TAKE 1 TAB PO; 200 MG DAILY = 400  TAKE 2 TABS PO
     Route: 048
     Dates: start: 20020101, end: 20040601
  2. CELEBREX [Suspect]
     Indication: SPINAL COLUMN STENOSIS
     Dosage: 200 MG -DAILY TAKE 1 TAB PO; 200 MG DAILY = 400  TAKE 2 TABS PO
     Route: 048
     Dates: start: 20020101, end: 20040601
  3. CELEBREX [Suspect]
     Indication: OSTEOARTHRITIS
     Dosage: 200 MG -DAILY TAKE 1 TAB PO; 200 MG DAILY = 400  TAKE 2 TABS PO
     Route: 048
     Dates: start: 20040601, end: 20041124
  4. CELEBREX [Suspect]
     Indication: SPINAL COLUMN STENOSIS
     Dosage: 200 MG -DAILY TAKE 1 TAB PO; 200 MG DAILY = 400  TAKE 2 TABS PO
     Route: 048
     Dates: start: 20040601, end: 20041124

REACTIONS (3)
  - CORONARY ARTERY THROMBOSIS [None]
  - MYOCARDIAL INFARCTION [None]
  - SPINAL COLUMN STENOSIS [None]
